FAERS Safety Report 20492717 (Version 8)
Quarter: 2024Q1

REPORT INFORMATION
  Report Type: Spontaneous
  Country: ES (occurrence: ES)
  Receive Date: 20220219
  Receipt Date: 20240130
  Transmission Date: 20240409
  Serious: Yes (Hospitalization, Other)
  Sender: FDA-Public Use
  Company Number: ES-Accord-239065

PATIENT
  Age: 76 Year
  Sex: Female
  Weight: 51.3 kg

DRUGS (44)
  1. GEMCITABINE [Suspect]
     Active Substance: GEMCITABINE
     Indication: Diffuse large B-cell lymphoma stage IV
     Dosage: DOSE: 1Q2W
     Route: 042
     Dates: start: 20210810, end: 20210810
  2. OXALIPLATIN [Suspect]
     Active Substance: OXALIPLATIN
     Indication: Diffuse large B-cell lymphoma stage IV
     Dosage: 1Q2W
     Route: 042
     Dates: start: 20210810, end: 20210810
  3. EPCORITAMAB [Suspect]
     Active Substance: EPCORITAMAB
     Indication: Diffuse large B-cell lymphoma stage IV
     Dosage: PRIMING DOSE: 0.16 MILLIGRAM, SINGLE
     Route: 058
     Dates: start: 20210810, end: 20210810
  4. DEXCHLORPHENIRAMINE MALEATE [Concomitant]
     Active Substance: DEXCHLORPHENIRAMINE MALEATE
     Indication: Premedication
     Route: 042
     Dates: start: 20210817, end: 20210907
  5. ACETAMINOPHEN [Concomitant]
     Active Substance: ACETAMINOPHEN
     Indication: Premedication
     Route: 042
     Dates: start: 20210817, end: 20210907
  6. METHYLPREDNISOLONE [Concomitant]
     Active Substance: METHYLPREDNISOLONE
     Indication: Prophylaxis
     Route: 042
     Dates: start: 20210810, end: 20210813
  7. ALLOPURINOL [Concomitant]
     Active Substance: ALLOPURINOL
     Dates: start: 202102
  8. FLUCONAZOLE [Concomitant]
     Active Substance: FLUCONAZOLE
     Dates: start: 20210903, end: 20210912
  9. FUROSEMIDE [Concomitant]
     Active Substance: FUROSEMIDE
     Dates: start: 20210810, end: 20210906
  10. HIBOR [Concomitant]
     Dates: start: 20210202
  11. LORAZEPAM [Concomitant]
     Active Substance: LORAZEPAM
     Dates: start: 20210420
  12. MAGNESIUM [Concomitant]
     Active Substance: MAGNESIUM
     Dates: start: 20210309
  13. OMEPRAZOLE [Concomitant]
     Active Substance: OMEPRAZOLE
     Dates: start: 20210420, end: 20220325
  14. SULFAMETHOXAZOLE\TRIMETHOPRIM [Concomitant]
     Active Substance: SULFAMETHOXAZOLE\TRIMETHOPRIM
     Dates: start: 202102
  15. PREDNISONE [Concomitant]
     Active Substance: PREDNISONE
     Indication: Prophylaxis
     Route: 048
     Dates: start: 20210907, end: 20210910
  16. ALBUPLAN [Concomitant]
     Dates: start: 20210810, end: 20210906
  17. AMLODIPINE [Concomitant]
     Active Substance: AMLODIPINE BESYLATE
     Dates: start: 20210905, end: 202109
  18. CALCIUM CHLORIDE [Concomitant]
     Active Substance: CALCIUM CHLORIDE
     Dates: start: 20210901, end: 20210905
  19. FILGRASTIM [Concomitant]
     Active Substance: FILGRASTIM
     Dates: start: 20210816, end: 20210816
  20. FUROSEMIDE [Concomitant]
     Active Substance: FUROSEMIDE
     Dates: start: 20210813, end: 20210815
  21. LEVOFLOXACIN [Concomitant]
     Active Substance: LEVOFLOXACIN
     Dates: start: 20210903, end: 20210905
  22. LOSARTAN [Concomitant]
     Active Substance: LOSARTAN
     Dates: start: 20210904, end: 202109
  23. CALCIUM CARBONATE [Concomitant]
     Active Substance: CALCIUM CARBONATE
     Dates: start: 20210813, end: 20210822
  24. POTASSIUM PHOSPHATE, MONOBASIC [Concomitant]
     Active Substance: POTASSIUM PHOSPHATE, MONOBASIC
     Dates: start: 20210824, end: 20210826
  25. ONDANSETRON [Concomitant]
     Active Substance: ONDANSETRON
     Dates: start: 20210810, end: 20210902
  26. OSTINE [Concomitant]
     Dates: start: 20210825, end: 20210906
  27. PANTOPRAZOLE SODIUM [Concomitant]
     Active Substance: PANTOPRAZOLE SODIUM
     Dates: start: 20210816, end: 20210819
  28. POTASSIUM CHLORIDE [Concomitant]
     Active Substance: POTASSIUM CHLORIDE
     Dates: start: 20210826, end: 20210828
  29. RASBURICASE [Concomitant]
     Active Substance: RASBURICASE
     Dates: start: 20210810, end: 20210907
  30. SODIUM BICARBONATE [Concomitant]
     Active Substance: SODIUM BICARBONATE
     Dates: start: 20210903, end: 20210905
  31. SULFAMETHOXAZOLE [Concomitant]
     Active Substance: SULFAMETHOXAZOLE
     Dates: start: 20210810, end: 20210822
  32. SULMETIN [Concomitant]
     Dates: start: 20210816, end: 20210915
  33. SUPLECAL [Concomitant]
     Dates: start: 20210810, end: 20210826
  34. TRIMETHOPRIM [Concomitant]
     Active Substance: TRIMETHOPRIM
     Dates: start: 20210810, end: 20210822
  35. TEICOPLANIN [Concomitant]
     Active Substance: TEICOPLANIN
     Dates: start: 20210902, end: 20210902
  36. GEMCITABINE [Suspect]
     Active Substance: GEMCITABINE
     Indication: Diffuse large B-cell lymphoma stage IV
     Dosage: DOSE: 1Q2W
     Route: 042
     Dates: start: 20210914
  37. OXALIPLATIN [Suspect]
     Active Substance: OXALIPLATIN
     Indication: Diffuse large B-cell lymphoma stage IV
     Dosage: 1Q2W
     Route: 042
     Dates: start: 20210914
  38. METHYLPREDNISOLONE [Concomitant]
     Active Substance: METHYLPREDNISOLONE
     Indication: Prophylaxis
     Route: 042
     Dates: start: 20210817, end: 20210820
  39. METHYLPREDNISOLONE [Concomitant]
     Active Substance: METHYLPREDNISOLONE
     Indication: Prophylaxis
     Route: 042
     Dates: start: 20210831, end: 20210904
  40. METHYLPREDNISOLONE [Concomitant]
     Active Substance: METHYLPREDNISOLONE
     Indication: Prophylaxis
     Route: 042
     Dates: start: 20210907, end: 20210910
  41. GEMCITABINE [Suspect]
     Active Substance: GEMCITABINE
     Indication: Diffuse large B-cell lymphoma stage IV
     Dosage: DOSE: 1Q2W
     Route: 042
     Dates: start: 20210831
  42. EPCORITAMAB [Suspect]
     Active Substance: EPCORITAMAB
     Indication: Diffuse large B-cell lymphoma stage IV
     Dosage: INTERMEDIATE DOSE: 0.8 MILLIGRAM, SINGLE
     Route: 058
     Dates: start: 20210817, end: 20210817
  43. EPCORITAMAB [Suspect]
     Active Substance: EPCORITAMAB
     Indication: Diffuse large B-cell lymphoma stage IV
     Dosage: FULL DOSE: 48 MILLIGRAM, WEEKLY
     Route: 058
     Dates: start: 20210831
  44. OXALIPLATIN [Suspect]
     Active Substance: OXALIPLATIN
     Indication: Diffuse large B-cell lymphoma stage IV
     Dosage: 1Q2W
     Route: 042
     Dates: start: 20210831

REACTIONS (3)
  - Febrile neutropenia [Recovered/Resolved]
  - Off label use [Unknown]
  - Cytokine release syndrome [Recovered/Resolved]

NARRATIVE: CASE EVENT DATE: 20210823
